FAERS Safety Report 24798106 (Version 2)
Quarter: 2025Q1

REPORT INFORMATION
  Report Type: Spontaneous
  Country: CA (occurrence: CA)
  Receive Date: 20250102
  Receipt Date: 20250225
  Transmission Date: 20250409
  Serious: Yes (Life-Threatening, Hospitalization, Disabling, Other)
  Sender: BRISTOL-MYERS SQUIBB COMPANY
  Company Number: CA-BRISTOL-MYERS SQUIBB COMPANY-2024-197586

PATIENT
  Age: 40 Year
  Sex: Female

DRUGS (385)
  1. ORENCIA [Suspect]
     Active Substance: ABATACEPT
     Indication: Rheumatoid arthritis
     Route: 058
  2. ORENCIA [Suspect]
     Active Substance: ABATACEPT
     Indication: Rheumatoid arthritis
  3. ORENCIA [Suspect]
     Active Substance: ABATACEPT
  4. ORENCIA [Suspect]
     Active Substance: ABATACEPT
  5. ORENCIA [Suspect]
     Active Substance: ABATACEPT
  6. ORENCIA [Suspect]
     Active Substance: ABATACEPT
  7. ORENCIA [Suspect]
     Active Substance: ABATACEPT
  8. TRIAMCINOLONE ACETONIDE [Suspect]
     Active Substance: TRIAMCINOLONE ACETONIDE
     Indication: Rheumatoid arthritis
     Route: 014
  9. ORENCIA [Suspect]
     Active Substance: ABATACEPT
     Indication: Rheumatoid arthritis
     Route: 040
  10. ORENCIA [Suspect]
     Active Substance: ABATACEPT
     Route: 040
  11. ORENCIA [Suspect]
     Active Substance: ABATACEPT
     Route: 040
  12. ORENCIA [Suspect]
     Active Substance: ABATACEPT
     Route: 040
  13. ACETAMINOPHEN [Concomitant]
     Active Substance: ACETAMINOPHEN
     Indication: Rheumatoid arthritis
  14. ACETAMINOPHEN [Concomitant]
     Active Substance: ACETAMINOPHEN
  15. ACETAMINOPHEN [Concomitant]
     Active Substance: ACETAMINOPHEN
  16. ACETAMINOPHEN [Concomitant]
     Active Substance: ACETAMINOPHEN
  17. ACETAMINOPHEN [Concomitant]
     Active Substance: ACETAMINOPHEN
  18. ACETAMINOPHEN [Concomitant]
     Active Substance: ACETAMINOPHEN
  19. ACTEMRA [Concomitant]
     Active Substance: TOCILIZUMAB
     Indication: Rheumatoid arthritis
     Route: 058
  20. ACTEMRA [Concomitant]
     Active Substance: TOCILIZUMAB
     Route: 058
  21. ACTEMRA [Concomitant]
     Active Substance: TOCILIZUMAB
     Route: 016
  22. ACTEMRA [Concomitant]
     Active Substance: TOCILIZUMAB
  23. ACTEMRA [Concomitant]
     Active Substance: TOCILIZUMAB
  24. ACTEMRA [Concomitant]
     Active Substance: TOCILIZUMAB
  25. ACTEMRA [Concomitant]
     Active Substance: TOCILIZUMAB
  26. ACTEMRA [Concomitant]
     Active Substance: TOCILIZUMAB
  27. ACTEMRA [Concomitant]
     Active Substance: TOCILIZUMAB
  28. ACTEMRA [Concomitant]
     Active Substance: TOCILIZUMAB
  29. ACTEMRA [Concomitant]
     Active Substance: TOCILIZUMAB
     Route: 058
  30. ACTEMRA [Concomitant]
     Active Substance: TOCILIZUMAB
     Route: 058
  31. ACTEMRA [Concomitant]
     Active Substance: TOCILIZUMAB
     Route: 058
  32. ACTEMRA [Concomitant]
     Active Substance: TOCILIZUMAB
     Route: 058
  33. ACTEMRA [Concomitant]
     Active Substance: TOCILIZUMAB
     Route: 058
  34. ACTEMRA [Concomitant]
     Active Substance: TOCILIZUMAB
  35. ACTEMRA [Concomitant]
     Active Substance: TOCILIZUMAB
  36. ACTEMRA [Concomitant]
     Active Substance: TOCILIZUMAB
  37. ADALIMUMAB [Concomitant]
     Active Substance: ADALIMUMAB
     Indication: Rheumatoid arthritis
     Route: 058
  38. ADALIMUMAB [Concomitant]
     Active Substance: ADALIMUMAB
     Route: 058
  39. ADALIMUMAB [Concomitant]
     Active Substance: ADALIMUMAB
     Route: 058
  40. AIMOVIG [Concomitant]
     Active Substance: ERENUMAB-AOOE
     Indication: Migraine
  41. AIMOVIG [Concomitant]
     Active Substance: ERENUMAB-AOOE
  42. ALENDRONIC ACID [Concomitant]
     Active Substance: ALENDRONIC ACID
     Indication: Rheumatoid arthritis
     Route: 016
  43. ALENDRONIC ACID [Concomitant]
     Active Substance: ALENDRONIC ACID
     Route: 048
  44. ALENDRONIC ACID [Concomitant]
     Active Substance: ALENDRONIC ACID
     Route: 048
  45. ALENDRONIC ACID [Concomitant]
     Active Substance: ALENDRONIC ACID
  46. ALENDRONIC ACID [Concomitant]
     Active Substance: ALENDRONIC ACID
  47. ALENDRONIC ACID [Concomitant]
     Active Substance: ALENDRONIC ACID
     Route: 048
  48. ALENDRONIC ACID [Concomitant]
     Active Substance: ALENDRONIC ACID
  49. LEFLUNOMIDE [Concomitant]
     Active Substance: LEFLUNOMIDE
     Indication: Rheumatoid arthritis
  50. LEFLUNOMIDE [Concomitant]
     Active Substance: LEFLUNOMIDE
  51. PREDNISONE [Concomitant]
     Active Substance: PREDNISONE
     Indication: Rheumatoid arthritis
  52. PREDNISONE [Concomitant]
     Active Substance: PREDNISONE
     Route: 048
  53. PREDNISONE [Concomitant]
     Active Substance: PREDNISONE
     Route: 048
  54. PREDNISONE [Concomitant]
     Active Substance: PREDNISONE
  55. PREDNISONE [Concomitant]
     Active Substance: PREDNISONE
  56. PREDNISONE [Concomitant]
     Active Substance: PREDNISONE
     Route: 048
  57. PREDNISONE [Concomitant]
     Active Substance: PREDNISONE
     Route: 048
  58. PREDNISONE [Concomitant]
     Active Substance: PREDNISONE
     Route: 048
  59. PREDNISONE [Concomitant]
     Active Substance: PREDNISONE
     Route: 048
  60. APREMILAST [Concomitant]
     Active Substance: APREMILAST
     Indication: Rheumatoid arthritis
  61. ARAVA [Concomitant]
     Active Substance: LEFLUNOMIDE
     Indication: Rheumatoid arthritis
  62. ARAVA [Concomitant]
     Active Substance: LEFLUNOMIDE
  63. ARAVA [Concomitant]
     Active Substance: LEFLUNOMIDE
     Route: 048
  64. ARAVA [Concomitant]
     Active Substance: LEFLUNOMIDE
     Route: 048
  65. ARAVA [Concomitant]
     Active Substance: LEFLUNOMIDE
  66. ARAVA [Concomitant]
     Active Substance: LEFLUNOMIDE
     Route: 048
  67. ARAVA [Concomitant]
     Active Substance: LEFLUNOMIDE
     Route: 048
  68. AZATHIOPRINE SODIUM [Concomitant]
     Active Substance: AZATHIOPRINE SODIUM
     Indication: Rheumatoid arthritis
  69. BERINERT [Concomitant]
     Active Substance: HUMAN C1-ESTERASE INHIBITOR
     Indication: Product used for unknown indication
  70. BOTULINUM TOXIN TYPE A [Concomitant]
     Active Substance: BOTULINUM TOXIN TYPE A
     Indication: Product used for unknown indication
  71. BUTRANS [Concomitant]
     Active Substance: BUPRENORPHINE
     Indication: Migraine
  72. CANDESARTAN [Concomitant]
     Active Substance: CANDESARTAN
     Indication: Migraine
  73. CELEBREX [Concomitant]
     Active Substance: CELECOXIB
     Indication: Migraine
     Route: 048
  74. CELEBREX [Concomitant]
     Active Substance: CELECOXIB
  75. CERTOLIZUMAB PEGOL [Concomitant]
     Active Substance: CERTOLIZUMAB PEGOL
     Indication: Product used for unknown indication
  76. CERTOLIZUMAB PEGOL [Concomitant]
     Active Substance: CERTOLIZUMAB PEGOL
     Route: 058
  77. CERTOLIZUMAB PEGOL [Concomitant]
     Active Substance: CERTOLIZUMAB PEGOL
     Route: 058
  78. CERTOLIZUMAB PEGOL [Concomitant]
     Active Substance: CERTOLIZUMAB PEGOL
     Route: 058
  79. CERTOLIZUMAB PEGOL [Concomitant]
     Active Substance: CERTOLIZUMAB PEGOL
  80. CERTOLIZUMAB PEGOL [Concomitant]
     Active Substance: CERTOLIZUMAB PEGOL
  81. CETIRIZINE HYDROCHLORIDE [Concomitant]
     Active Substance: CETIRIZINE HYDROCHLORIDE
     Indication: Rheumatoid arthritis
     Route: 016
  82. CETIRIZINE HYDROCHLORIDE [Concomitant]
     Active Substance: CETIRIZINE HYDROCHLORIDE
  83. CETIRIZINE HYDROCHLORIDE [Concomitant]
     Active Substance: CETIRIZINE HYDROCHLORIDE
  84. CETIRIZINE HYDROCHLORIDE [Concomitant]
     Active Substance: CETIRIZINE HYDROCHLORIDE
  85. CETIRIZINE HYDROCHLORIDE [Concomitant]
     Active Substance: CETIRIZINE HYDROCHLORIDE
  86. CETIRIZINE HYDROCHLORIDE [Concomitant]
     Active Substance: CETIRIZINE HYDROCHLORIDE
  87. CETIRIZINE HYDROCHLORIDE [Concomitant]
     Active Substance: CETIRIZINE HYDROCHLORIDE
  88. CETIRIZINE HYDROCHLORIDE [Concomitant]
     Active Substance: CETIRIZINE HYDROCHLORIDE
     Route: 048
  89. CETIRIZINE HYDROCHLORIDE [Concomitant]
     Active Substance: CETIRIZINE HYDROCHLORIDE
  90. CETIRIZINE HYDROCHLORIDE [Concomitant]
     Active Substance: CETIRIZINE HYDROCHLORIDE
  91. CETIRIZINE HYDROCHLORIDE [Concomitant]
     Active Substance: CETIRIZINE HYDROCHLORIDE
  92. CETIRIZINE HYDROCHLORIDE [Concomitant]
     Active Substance: CETIRIZINE HYDROCHLORIDE
  93. CETIRIZINE HYDROCHLORIDE [Concomitant]
     Active Substance: CETIRIZINE HYDROCHLORIDE
  94. CETIRIZINE HYDROCHLORIDE [Concomitant]
     Active Substance: CETIRIZINE HYDROCHLORIDE
  95. CETIRIZINE HYDROCHLORIDE [Concomitant]
     Active Substance: CETIRIZINE HYDROCHLORIDE
  96. CETIRIZINE HYDROCHLORIDE [Concomitant]
     Active Substance: CETIRIZINE HYDROCHLORIDE
  97. CETIRIZINE HYDROCHLORIDE [Concomitant]
     Active Substance: CETIRIZINE HYDROCHLORIDE
     Route: 048
  98. CETIRIZINE HYDROCHLORIDE [Concomitant]
     Active Substance: CETIRIZINE HYDROCHLORIDE
  99. CETIRIZINE HYDROCHLORIDE [Concomitant]
     Active Substance: CETIRIZINE HYDROCHLORIDE
  100. CETIRIZINE HYDROCHLORIDE [Concomitant]
     Active Substance: CETIRIZINE HYDROCHLORIDE
  101. CETIRIZINE HYDROCHLORIDE [Concomitant]
     Active Substance: CETIRIZINE HYDROCHLORIDE
  102. CETIRIZINE HYDROCHLORIDE [Concomitant]
     Active Substance: CETIRIZINE HYDROCHLORIDE
     Route: 048
  103. CETIRIZINE HYDROCHLORIDE [Concomitant]
     Active Substance: CETIRIZINE HYDROCHLORIDE
  104. CHLORHEXIDINE GLUCONATE [Concomitant]
     Active Substance: CHLORHEXIDINE GLUCONATE
     Indication: Product used for unknown indication
  105. CHLORHEXIDINE GLUCONATE [Concomitant]
     Active Substance: CHLORHEXIDINE GLUCONATE
  106. CHLORHEXIDINE GLUCONATE [Concomitant]
     Active Substance: CHLORHEXIDINE GLUCONATE
  107. CHOLECALCIFEROL [Concomitant]
     Active Substance: CHOLECALCIFEROL
     Indication: Product used for unknown indication
  108. CIMZIA [Concomitant]
     Active Substance: CERTOLIZUMAB PEGOL
     Indication: Rheumatoid arthritis
     Route: 058
  109. CIMZIA [Concomitant]
     Active Substance: CERTOLIZUMAB PEGOL
     Route: 058
  110. CIMZIA [Concomitant]
     Active Substance: CERTOLIZUMAB PEGOL
  111. CIMZIA [Concomitant]
     Active Substance: CERTOLIZUMAB PEGOL
     Route: 058
  112. CIMZIA [Concomitant]
     Active Substance: CERTOLIZUMAB PEGOL
     Route: 058
  113. CIMZIA [Concomitant]
     Active Substance: CERTOLIZUMAB PEGOL
  114. CIMZIA [Concomitant]
     Active Substance: CERTOLIZUMAB PEGOL
     Route: 058
  115. COSENTYX [Concomitant]
     Active Substance: SECUKINUMAB
     Indication: Rheumatoid arthritis
  116. COSENTYX [Concomitant]
     Active Substance: SECUKINUMAB
  117. COSENTYX [Concomitant]
     Active Substance: SECUKINUMAB
  118. DESOXIMETASONE [Concomitant]
     Active Substance: DESOXIMETASONE
     Indication: Rheumatoid arthritis
  119. DESOXIMETASONE [Concomitant]
     Active Substance: DESOXIMETASONE
  120. DESOXIMETASONE [Concomitant]
     Active Substance: DESOXIMETASONE
  121. DESOXIMETASONE [Concomitant]
     Active Substance: DESOXIMETASONE
  122. DESOXIMETASONE [Concomitant]
     Active Substance: DESOXIMETASONE
  123. DESOXIMETASONE [Concomitant]
     Active Substance: DESOXIMETASONE
  124. DESOXIMETASONE [Concomitant]
     Active Substance: DESOXIMETASONE
     Route: 048
  125. DESOXIMETASONE [Concomitant]
     Active Substance: DESOXIMETASONE
     Route: 048
  126. DESOXIMETASONE [Concomitant]
     Active Substance: DESOXIMETASONE
     Route: 048
  127. DESOXIMETASONE [Concomitant]
     Active Substance: DESOXIMETASONE
     Route: 048
  128. DESOXIMETASONE [Concomitant]
     Active Substance: DESOXIMETASONE
     Route: 048
  129. DESOXIMETASONE [Concomitant]
     Active Substance: DESOXIMETASONE
  130. DESOXIMETASONE [Concomitant]
     Active Substance: DESOXIMETASONE
  131. DESOXIMETASONE [Concomitant]
     Active Substance: DESOXIMETASONE
  132. DESOXIMETASONE [Concomitant]
     Active Substance: DESOXIMETASONE
     Route: 048
  133. DESOXIMETASONE [Concomitant]
     Active Substance: DESOXIMETASONE
  134. DICLOFENAC DIETHYLAMINE [Concomitant]
     Active Substance: DICLOFENAC DIETHYLAMINE
     Indication: Product used for unknown indication
  135. DICLOFENAC SODIUM [Concomitant]
     Active Substance: DICLOFENAC SODIUM
     Indication: Rheumatoid arthritis
  136. DICLOFENAC SODIUM [Concomitant]
     Active Substance: DICLOFENAC SODIUM
     Route: 058
  137. DICLOFENAC SODIUM [Concomitant]
     Active Substance: DICLOFENAC SODIUM
  138. DICLOFENAC SODIUM [Concomitant]
     Active Substance: DICLOFENAC SODIUM
  139. DOMPERIDONE MALEATE [Concomitant]
     Active Substance: DOMPERIDONE MALEATE
     Indication: Product used for unknown indication
  140. ENBREL [Concomitant]
     Active Substance: ETANERCEPT
     Indication: Rheumatoid arthritis
  141. ENBREL [Concomitant]
     Active Substance: ETANERCEPT
     Route: 058
  142. ENBREL [Concomitant]
     Active Substance: ETANERCEPT
     Route: 058
  143. ENBREL [Concomitant]
     Active Substance: ETANERCEPT
     Route: 058
  144. ENBREL [Concomitant]
     Active Substance: ETANERCEPT
     Route: 058
  145. ENBREL [Concomitant]
     Active Substance: ETANERCEPT
     Route: 058
  146. ENBREL [Concomitant]
     Active Substance: ETANERCEPT
  147. ENBREL [Concomitant]
     Active Substance: ETANERCEPT
     Route: 058
  148. ENBREL [Concomitant]
     Active Substance: ETANERCEPT
     Route: 058
  149. ENBREL [Concomitant]
     Active Substance: ETANERCEPT
  150. ENBREL [Concomitant]
     Active Substance: ETANERCEPT
     Route: 058
  151. ERELZI [Concomitant]
     Active Substance: ETANERCEPT-SZZS
     Indication: Rheumatoid arthritis
  152. ERELZI [Concomitant]
     Active Substance: ETANERCEPT-SZZS
     Route: 058
  153. ERELZI [Concomitant]
     Active Substance: ETANERCEPT-SZZS
     Route: 058
  154. FLUMETHASONE [Concomitant]
     Active Substance: FLUMETHASONE
     Indication: Product used for unknown indication
  155. FLUMETHASONE PIVALATE [Concomitant]
     Active Substance: FLUMETHASONE PIVALATE
     Indication: Product used for unknown indication
  156. FLUMETHASONE PIVALATE [Concomitant]
     Active Substance: FLUMETHASONE PIVALATE
  157. FOLIC ACID [Concomitant]
     Active Substance: FOLIC ACID
     Indication: Rheumatoid arthritis
  158. FOLIC ACID [Concomitant]
     Active Substance: FOLIC ACID
     Route: 048
  159. FOLIC ACID [Concomitant]
     Active Substance: FOLIC ACID
  160. FOLIC ACID [Concomitant]
     Active Substance: FOLIC ACID
  161. FOLIC ACID [Concomitant]
     Active Substance: FOLIC ACID
     Route: 048
  162. FOLIC ACID [Concomitant]
     Active Substance: FOLIC ACID
  163. FOLIC ACID [Concomitant]
     Active Substance: FOLIC ACID
  164. FOLIC ACID [Concomitant]
     Active Substance: FOLIC ACID
     Route: 048
  165. FOLIC ACID [Concomitant]
     Active Substance: FOLIC ACID
  166. FOLIC ACID [Concomitant]
     Active Substance: FOLIC ACID
  167. FOLIC ACID [Concomitant]
     Active Substance: FOLIC ACID
  168. FOLIC ACID [Concomitant]
     Active Substance: FOLIC ACID
  169. FOLIC ACID [Concomitant]
     Active Substance: FOLIC ACID
  170. FOLIC ACID [Concomitant]
     Active Substance: FOLIC ACID
     Route: 048
  171. FOSAMAX [Concomitant]
     Active Substance: ALENDRONATE SODIUM
     Indication: Rheumatoid arthritis
  172. FOSAMAX [Concomitant]
     Active Substance: ALENDRONATE SODIUM
     Route: 048
  173. FOSAMAX [Concomitant]
     Active Substance: ALENDRONATE SODIUM
     Route: 016
  174. FOSAMAX [Concomitant]
     Active Substance: ALENDRONATE SODIUM
  175. FOSAMAX [Concomitant]
     Active Substance: ALENDRONATE SODIUM
  176. GOLD [Concomitant]
     Active Substance: GOLD
     Indication: Product used for unknown indication
  177. GOLD SODIUM THIOMALATE [Concomitant]
     Active Substance: GOLD SODIUM THIOMALATE
     Indication: Product used for unknown indication
  178. GOLIMUMAB [Concomitant]
     Active Substance: GOLIMUMAB
     Indication: Rheumatoid arthritis
     Route: 058
  179. GOLIMUMAB [Concomitant]
     Active Substance: GOLIMUMAB
     Indication: Prostatic specific antigen
  180. GOLIMUMAB [Concomitant]
     Active Substance: GOLIMUMAB
     Route: 058
  181. GOLIMUMAB [Concomitant]
     Active Substance: GOLIMUMAB
  182. HUMIRA [Concomitant]
     Active Substance: ADALIMUMAB
     Indication: Rheumatoid arthritis
     Route: 058
  183. HUMIRA [Concomitant]
     Active Substance: ADALIMUMAB
  184. HUMIRA [Concomitant]
     Active Substance: ADALIMUMAB
     Route: 058
  185. HUMIRA [Concomitant]
     Active Substance: ADALIMUMAB
     Route: 058
  186. HUMIRA [Concomitant]
     Active Substance: ADALIMUMAB
     Route: 058
  187. HYDROXYCHLOROQUINE [Concomitant]
     Active Substance: HYDROXYCHLOROQUINE
     Indication: Rheumatoid arthritis
  188. HYDROXYCHLOROQUINE [Concomitant]
     Active Substance: HYDROXYCHLOROQUINE
     Route: 048
  189. HYDROXYCHLOROQUINE [Concomitant]
     Active Substance: HYDROXYCHLOROQUINE
  190. HYDROXYCHLOROQUINE [Concomitant]
     Active Substance: HYDROXYCHLOROQUINE
     Route: 048
  191. HYDROXYCHLOROQUINE [Concomitant]
     Active Substance: HYDROXYCHLOROQUINE
     Route: 058
  192. HYDROXYCHLOROQUINE [Concomitant]
     Active Substance: HYDROXYCHLOROQUINE
  193. HYDROXYCHLOROQUINE [Concomitant]
     Active Substance: HYDROXYCHLOROQUINE
     Route: 016
  194. HYDROXYCHLOROQUINE [Concomitant]
     Active Substance: HYDROXYCHLOROQUINE
  195. HYDROXYCHLOROQUINE [Concomitant]
     Active Substance: HYDROXYCHLOROQUINE
     Route: 048
  196. HYDROXYCHLOROQUINE [Concomitant]
     Active Substance: HYDROXYCHLOROQUINE
     Route: 048
  197. HYDROXYCHLOROQUINE [Concomitant]
     Active Substance: HYDROXYCHLOROQUINE
  198. HYDROXYCHLOROQUINE [Concomitant]
     Active Substance: HYDROXYCHLOROQUINE
  199. HYDROXYCHLOROQUINE [Concomitant]
     Active Substance: HYDROXYCHLOROQUINE
  200. HYDROXYCHLOROQUINE [Concomitant]
     Active Substance: HYDROXYCHLOROQUINE
     Route: 048
  201. HYDROXYCHLOROQUINE [Concomitant]
     Active Substance: HYDROXYCHLOROQUINE
     Route: 048
  202. HYDROXYCHLOROQUINE [Concomitant]
     Active Substance: HYDROXYCHLOROQUINE
  203. HYDROXYCHLOROQUINE [Concomitant]
     Active Substance: HYDROXYCHLOROQUINE
  204. HYDROXYCHLOROQUINE [Concomitant]
     Active Substance: HYDROXYCHLOROQUINE
  205. HYDROXYCHLOROQUINE SULFATE [Concomitant]
     Active Substance: HYDROXYCHLOROQUINE SULFATE
     Indication: Rheumatoid arthritis
  206. HYDROXYCHLOROQUINE SULFATE [Concomitant]
     Active Substance: HYDROXYCHLOROQUINE SULFATE
     Route: 048
  207. HYDROXYCHLOROQUINE SULFATE [Concomitant]
     Active Substance: HYDROXYCHLOROQUINE SULFATE
  208. HYDROXYCHLOROQUINE SULFATE [Concomitant]
     Active Substance: HYDROXYCHLOROQUINE SULFATE
     Route: 048
  209. HYDROXYCHLOROQUINE SULFATE [Concomitant]
     Active Substance: HYDROXYCHLOROQUINE SULFATE
  210. HYDROXYCHLOROQUINE SULFATE [Concomitant]
     Active Substance: HYDROXYCHLOROQUINE SULFATE
     Route: 048
  211. HYDROXYCHLOROQUINE SULFATE [Concomitant]
     Active Substance: HYDROXYCHLOROQUINE SULFATE
  212. HYDROXYCHLOROQUINE SULFATE [Concomitant]
     Active Substance: HYDROXYCHLOROQUINE SULFATE
  213. HYDROXYCHLOROQUINE SULFATE [Concomitant]
     Active Substance: HYDROXYCHLOROQUINE SULFATE
  214. INFLIXIMAB [Concomitant]
     Active Substance: INFLIXIMAB
     Indication: Rheumatoid arthritis
  215. INFLIXIMAB [Concomitant]
     Active Substance: INFLIXIMAB
  216. INFLIXIMAB [Concomitant]
     Active Substance: INFLIXIMAB
  217. INFLIXIMAB [Concomitant]
     Active Substance: INFLIXIMAB
  218. INFLIXIMAB [Concomitant]
     Active Substance: INFLIXIMAB
  219. LAMICTAL [Concomitant]
     Active Substance: LAMOTRIGINE
     Indication: Product used for unknown indication
     Route: 048
  220. LAMICTAL [Concomitant]
     Active Substance: LAMOTRIGINE
     Route: 048
  221. LAMICTAL [Concomitant]
     Active Substance: LAMOTRIGINE
     Route: 048
  222. LAMICTAL [Concomitant]
     Active Substance: LAMOTRIGINE
     Route: 048
  223. LAMICTAL [Concomitant]
     Active Substance: LAMOTRIGINE
     Route: 048
  224. LAMICTAL [Concomitant]
     Active Substance: LAMOTRIGINE
     Route: 048
  225. LEFLUNOMIDE [Concomitant]
     Active Substance: LEFLUNOMIDE
     Indication: Rheumatoid arthritis
  226. LEFLUNOMIDE [Concomitant]
     Active Substance: LEFLUNOMIDE
     Route: 048
  227. LEFLUNOMIDE [Concomitant]
     Active Substance: LEFLUNOMIDE
  228. LEFLUNOMIDE [Concomitant]
     Active Substance: LEFLUNOMIDE
  229. LEFLUNOMIDE [Concomitant]
     Active Substance: LEFLUNOMIDE
  230. LEFLUNOMIDE [Concomitant]
     Active Substance: LEFLUNOMIDE
  231. METFORMIN HYDROCHLORIDE [Concomitant]
     Active Substance: METFORMIN HYDROCHLORIDE
     Indication: Rheumatoid arthritis
  232. METHOTREXATE [Concomitant]
     Active Substance: METHOTREXATE
     Indication: Rheumatoid arthritis
     Route: 013
  233. METHOTREXATE [Concomitant]
     Active Substance: METHOTREXATE
     Route: 048
  234. METHOTREXATE [Concomitant]
     Active Substance: METHOTREXATE
  235. METHOTREXATE [Concomitant]
     Active Substance: METHOTREXATE
  236. METHOTREXATE [Concomitant]
     Active Substance: METHOTREXATE
     Route: 058
  237. METHOTREXATE [Concomitant]
     Active Substance: METHOTREXATE
     Route: 048
  238. METHOTREXATE [Concomitant]
     Active Substance: METHOTREXATE
     Route: 013
  239. METHOTREXATE [Concomitant]
     Active Substance: METHOTREXATE
     Route: 048
  240. METHOTREXATE [Concomitant]
     Active Substance: METHOTREXATE
  241. METHOTREXATE [Concomitant]
     Active Substance: METHOTREXATE
     Route: 048
  242. METHOTREXATE [Concomitant]
     Active Substance: METHOTREXATE
     Route: 048
  243. METHOTREXATE [Concomitant]
     Active Substance: METHOTREXATE
  244. METHOTREXATE [Concomitant]
     Active Substance: METHOTREXATE
     Route: 048
  245. METHOTREXATE [Concomitant]
     Active Substance: METHOTREXATE
  246. METHOTREXATE [Concomitant]
     Active Substance: METHOTREXATE
     Route: 048
  247. METHOTREXATE [Concomitant]
     Active Substance: METHOTREXATE
     Route: 058
  248. METHOTREXATE [Concomitant]
     Active Substance: METHOTREXATE
  249. METHOTREXATE [Concomitant]
     Active Substance: METHOTREXATE
     Route: 048
  250. METHOTREXATE [Concomitant]
     Active Substance: METHOTREXATE
  251. METHOTREXATE [Concomitant]
     Active Substance: METHOTREXATE
     Route: 016
  252. METHOTREXATE [Concomitant]
     Active Substance: METHOTREXATE
  253. METHOTREXATE [Concomitant]
     Active Substance: METHOTREXATE
     Route: 048
  254. METHOTREXATE [Concomitant]
     Active Substance: METHOTREXATE
  255. METHYLPREDNISOLONE [Concomitant]
     Active Substance: METHYLPREDNISOLONE
     Indication: Rheumatoid arthritis
  256. METHYLPREDNISOLONE SODIUM SUCCINATE [Concomitant]
     Active Substance: METHYLPREDNISOLONE SODIUM SUCCINATE
     Indication: Rheumatoid arthritis
  257. MINOCYCLINE [Concomitant]
     Active Substance: MINOCYCLINE HYDROCHLORIDE
     Indication: Product used for unknown indication
  258. MINOCYCLINE HYDROCHLORIDE [Concomitant]
     Active Substance: MINOCYCLINE HYDROCHLORIDE
     Indication: Rheumatoid arthritis
  259. MYOCHRYSINE [Concomitant]
     Active Substance: GOLD SODIUM THIOMALATE
     Indication: Rheumatoid arthritis
     Route: 030
  260. MYRBETRIQ [Concomitant]
     Active Substance: MIRABEGRON
     Indication: Product used for unknown indication
  261. MYRBETRIQ [Concomitant]
     Active Substance: MIRABEGRON
  262. NAPROXEN [Concomitant]
     Active Substance: NAPROXEN
     Indication: Product used for unknown indication
  263. NAPROXEN SODIUM [Concomitant]
     Active Substance: NAPROXEN SODIUM
     Indication: Rheumatoid arthritis
  264. NUCALA [Concomitant]
     Active Substance: MEPOLIZUMAB
     Indication: Product used for unknown indication
  265. OXYCODONE [Concomitant]
     Active Substance: OXYCODONE
     Indication: Product used for unknown indication
  266. OXYCODONE TEREPHTHALATE [Concomitant]
     Active Substance: OXYCODONE TEREPHTHALATE
     Indication: Product used for unknown indication
  267. PHENYLEPHRINE HYDROCHLORIDE [Concomitant]
     Active Substance: PHENYLEPHRINE HYDROCHLORIDE
     Indication: Rheumatoid arthritis
  268. PHTHALYLSULFATHIAZOLE [Concomitant]
     Active Substance: PHTHALYLSULFATHIAZOLE
     Indication: Rheumatoid arthritis
     Route: 058
  269. PHTHALYLSULFATHIAZOLE [Concomitant]
     Active Substance: PHTHALYLSULFATHIAZOLE
  270. PHTHALYLSULFATHIAZOLE [Concomitant]
     Active Substance: PHTHALYLSULFATHIAZOLE
  271. PHTHALYLSULFATHIAZOLE [Concomitant]
     Active Substance: PHTHALYLSULFATHIAZOLE
  272. PHTHALYLSULFATHIAZOLE [Concomitant]
     Active Substance: PHTHALYLSULFATHIAZOLE
     Route: 048
  273. PHTHALYLSULFATHIAZOLE [Concomitant]
     Active Substance: PHTHALYLSULFATHIAZOLE
  274. PHTHALYLSULFATHIAZOLE [Concomitant]
     Active Substance: PHTHALYLSULFATHIAZOLE
     Route: 048
  275. PHTHALYLSULFATHIAZOLE [Concomitant]
     Active Substance: PHTHALYLSULFATHIAZOLE
  276. PREDNISONE [Concomitant]
     Active Substance: PREDNISONE
     Indication: Rheumatoid arthritis
  277. PREDNISONE [Concomitant]
     Active Substance: PREDNISONE
  278. PREDNISONE [Concomitant]
     Active Substance: PREDNISONE
  279. PREDNISONE [Concomitant]
     Active Substance: PREDNISONE
  280. PREDNISONE [Concomitant]
     Active Substance: PREDNISONE
     Route: 048
  281. PREDNISONE [Concomitant]
     Active Substance: PREDNISONE
  282. PREDNISONE [Concomitant]
     Active Substance: PREDNISONE
     Route: 048
  283. PREDNISONE [Concomitant]
     Active Substance: PREDNISONE
     Route: 048
  284. PREDNISONE [Concomitant]
     Active Substance: PREDNISONE
     Route: 048
  285. PREDNISONE [Concomitant]
     Active Substance: PREDNISONE
     Route: 048
  286. PSEUDOEPHEDRINE HYDROCHLORIDE [Concomitant]
     Active Substance: PSEUDOEPHEDRINE HYDROCHLORIDE
     Indication: Rheumatoid arthritis
  287. PSEUDOEPHEDRINE HYDROCHLORIDE [Concomitant]
     Active Substance: PSEUDOEPHEDRINE HYDROCHLORIDE
  288. PSEUDOEPHEDRINE HYDROCHLORIDE [Concomitant]
     Active Substance: PSEUDOEPHEDRINE HYDROCHLORIDE
  289. PSEUDOEPHEDRINE HYDROCHLORIDE [Concomitant]
     Active Substance: PSEUDOEPHEDRINE HYDROCHLORIDE
  290. RAMIPRIL [Concomitant]
     Active Substance: RAMIPRIL
     Indication: Rheumatoid arthritis
  291. RAMIPRIL [Concomitant]
     Active Substance: RAMIPRIL
  292. RAMIPRIL [Concomitant]
     Active Substance: RAMIPRIL
     Route: 016
  293. RANITIDINE [Concomitant]
     Active Substance: RANITIDINE
     Indication: Product used for unknown indication
  294. CETIRIZINE HYDROCHLORIDE\PSEUDOEPHEDRINE HYDROCHLORIDE [Concomitant]
     Active Substance: CETIRIZINE HYDROCHLORIDE\PSEUDOEPHEDRINE HYDROCHLORIDE
     Indication: Rheumatoid arthritis
  295. CETIRIZINE HYDROCHLORIDE\PSEUDOEPHEDRINE HYDROCHLORIDE [Concomitant]
     Active Substance: CETIRIZINE HYDROCHLORIDE\PSEUDOEPHEDRINE HYDROCHLORIDE
  296. CETIRIZINE HYDROCHLORIDE\PSEUDOEPHEDRINE HYDROCHLORIDE [Concomitant]
     Active Substance: CETIRIZINE HYDROCHLORIDE\PSEUDOEPHEDRINE HYDROCHLORIDE
  297. CETIRIZINE HYDROCHLORIDE\PSEUDOEPHEDRINE HYDROCHLORIDE [Concomitant]
     Active Substance: CETIRIZINE HYDROCHLORIDE\PSEUDOEPHEDRINE HYDROCHLORIDE
  298. CETIRIZINE HYDROCHLORIDE\PSEUDOEPHEDRINE HYDROCHLORIDE [Concomitant]
     Active Substance: CETIRIZINE HYDROCHLORIDE\PSEUDOEPHEDRINE HYDROCHLORIDE
  299. CETIRIZINE HYDROCHLORIDE\PSEUDOEPHEDRINE HYDROCHLORIDE [Concomitant]
     Active Substance: CETIRIZINE HYDROCHLORIDE\PSEUDOEPHEDRINE HYDROCHLORIDE
  300. CETIRIZINE HYDROCHLORIDE\PSEUDOEPHEDRINE HYDROCHLORIDE [Concomitant]
     Active Substance: CETIRIZINE HYDROCHLORIDE\PSEUDOEPHEDRINE HYDROCHLORIDE
  301. REMICADE [Concomitant]
     Active Substance: INFLIXIMAB
     Indication: Rheumatoid arthritis
     Route: 058
  302. REMICADE [Concomitant]
     Active Substance: INFLIXIMAB
     Route: 058
  303. REMICADE [Concomitant]
     Active Substance: INFLIXIMAB
  304. REMICADE [Concomitant]
     Active Substance: INFLIXIMAB
  305. REMICADE [Concomitant]
     Active Substance: INFLIXIMAB
  306. REMICADE [Concomitant]
     Active Substance: INFLIXIMAB
  307. REMICADE [Concomitant]
     Active Substance: INFLIXIMAB
  308. RITUXIMAB [Concomitant]
     Active Substance: RITUXIMAB
     Indication: Rheumatoid arthritis
  309. RITUXIMAB [Concomitant]
     Active Substance: RITUXIMAB
  310. RITUXIMAB [Concomitant]
     Active Substance: RITUXIMAB
     Route: 043
  311. RITUXIMAB [Concomitant]
     Active Substance: RITUXIMAB
  312. RITUXIMAB [Concomitant]
     Active Substance: RITUXIMAB
  313. RITUXIMAB [Concomitant]
     Active Substance: RITUXIMAB
  314. RITUXIMAB [Concomitant]
     Active Substance: RITUXIMAB
  315. RITUXIMAB [Concomitant]
     Active Substance: RITUXIMAB
     Route: 016
  316. RITUXIMAB [Concomitant]
     Active Substance: RITUXIMAB
     Route: 016
  317. RITUXIMAB [Concomitant]
     Active Substance: RITUXIMAB
     Route: 016
  318. RITUXIMAB [Concomitant]
     Active Substance: RITUXIMAB
  319. RITUXIMAB [Concomitant]
     Active Substance: RITUXIMAB
     Route: 058
  320. RITUXIMAB [Concomitant]
     Active Substance: RITUXIMAB
  321. RITUXIMAB [Concomitant]
     Active Substance: RITUXIMAB
  322. RITUXIMAB [Concomitant]
     Active Substance: RITUXIMAB
  323. RITUXIMAB [Concomitant]
     Active Substance: RITUXIMAB
     Route: 040
  324. RITUXIMAB [Concomitant]
     Active Substance: RITUXIMAB
     Route: 043
  325. SIMPONI [Concomitant]
     Active Substance: GOLIMUMAB
     Indication: Rheumatoid arthritis
     Route: 058
  326. SIMPONI [Concomitant]
     Active Substance: GOLIMUMAB
     Route: 058
  327. SIMPONI [Concomitant]
     Active Substance: GOLIMUMAB
     Route: 058
  328. SIMPONI [Concomitant]
     Active Substance: GOLIMUMAB
  329. SIMPONI [Concomitant]
     Active Substance: GOLIMUMAB
  330. SIRUKUMAB [Concomitant]
     Active Substance: SIRUKUMAB
     Indication: Product used for unknown indication
  331. GOLD SODIUM THIOMALATE [Concomitant]
     Active Substance: GOLD SODIUM THIOMALATE
     Indication: Product used for unknown indication
  332. GOLD SODIUM THIOMALATE [Concomitant]
     Active Substance: GOLD SODIUM THIOMALATE
  333. GOLD SODIUM THIOMALATE [Concomitant]
     Active Substance: GOLD SODIUM THIOMALATE
     Route: 048
  334. SULFASALAZINE [Concomitant]
     Active Substance: SULFASALAZINE
     Indication: Rheumatoid arthritis
     Route: 048
  335. SULFASALAZINE [Concomitant]
     Active Substance: SULFASALAZINE
     Route: 058
  336. SULFASALAZINE [Concomitant]
     Active Substance: SULFASALAZINE
  337. SULFASALAZINE [Concomitant]
     Active Substance: SULFASALAZINE
  338. SULFASALAZINE [Concomitant]
     Active Substance: SULFASALAZINE
     Route: 048
  339. SULFASALAZINE [Concomitant]
     Active Substance: SULFASALAZINE
     Route: 048
  340. SULFASALAZINE [Concomitant]
     Active Substance: SULFASALAZINE
     Route: 048
  341. SULFASALAZINE [Concomitant]
     Active Substance: SULFASALAZINE
     Route: 048
  342. SULFASALAZINE [Concomitant]
     Active Substance: SULFASALAZINE
     Route: 058
  343. SULFASALAZINE [Concomitant]
     Active Substance: SULFASALAZINE
  344. SULFASALAZINE [Concomitant]
     Active Substance: SULFASALAZINE
  345. SULFASALAZINE [Concomitant]
     Active Substance: SULFASALAZINE
  346. SULFASALAZINE [Concomitant]
     Active Substance: SULFASALAZINE
  347. SULFASALAZINE [Concomitant]
     Active Substance: SULFASALAZINE
     Route: 058
  348. SULFASALAZINE [Concomitant]
     Active Substance: SULFASALAZINE
     Route: 058
  349. SULFASALAZINE [Concomitant]
     Active Substance: SULFASALAZINE
  350. SULFASALAZINE [Concomitant]
     Active Substance: SULFASALAZINE
     Route: 058
  351. SULFASALAZINE [Concomitant]
     Active Substance: SULFASALAZINE
  352. SULFASALAZINE [Concomitant]
     Active Substance: SULFASALAZINE
  353. SULFASALAZINE [Concomitant]
     Active Substance: SULFASALAZINE
     Route: 048
  354. SULFASALAZINE [Concomitant]
     Active Substance: SULFASALAZINE
     Route: 048
  355. SULFASALAZINE [Concomitant]
     Active Substance: SULFASALAZINE
     Route: 016
  356. SULFASALAZINE [Concomitant]
     Active Substance: SULFASALAZINE
     Route: 048
  357. SULFASALAZINE [Concomitant]
     Active Substance: SULFASALAZINE
  358. SULFASALAZINE [Concomitant]
     Active Substance: SULFASALAZINE
     Route: 058
  359. TETRACYCLINE HYDROCHLORIDE [Concomitant]
     Active Substance: TETRACYCLINE HYDROCHLORIDE
     Indication: Rheumatoid arthritis
  360. TOCILIZUMAB [Concomitant]
     Active Substance: TOCILIZUMAB
     Indication: Rheumatoid arthritis
  361. TOCILIZUMAB [Concomitant]
     Active Substance: TOCILIZUMAB
     Route: 058
  362. TOCILIZUMAB [Concomitant]
     Active Substance: TOCILIZUMAB
  363. TOCILIZUMAB [Concomitant]
     Active Substance: TOCILIZUMAB
  364. TOCILIZUMAB [Concomitant]
     Active Substance: TOCILIZUMAB
  365. TOCILIZUMAB [Concomitant]
     Active Substance: TOCILIZUMAB
     Route: 058
  366. TOCILIZUMAB [Concomitant]
     Active Substance: TOCILIZUMAB
     Route: 016
  367. TOFACITINIB CITRATE [Concomitant]
     Active Substance: TOFACITINIB CITRATE
     Indication: Rheumatoid arthritis
  368. TOFACITINIB CITRATE [Concomitant]
     Active Substance: TOFACITINIB CITRATE
  369. TOFACITINIB CITRATE [Concomitant]
     Active Substance: TOFACITINIB CITRATE
  370. TOPIRAMATE [Concomitant]
     Active Substance: TOPIRAMATE
     Indication: Rheumatoid arthritis
  371. TOPIRAMATE [Concomitant]
     Active Substance: TOPIRAMATE
  372. TOPIRAMATE [Concomitant]
     Active Substance: TOPIRAMATE
  373. TOPIRAMATE [Concomitant]
     Active Substance: TOPIRAMATE
  374. TRAMADOL HYDROCHLORIDE [Concomitant]
     Active Substance: TRAMADOL HYDROCHLORIDE
     Indication: Product used for unknown indication
  375. XELJANZ [Concomitant]
     Active Substance: TOFACITINIB CITRATE
     Indication: Rheumatoid arthritis
  376. XELJANZ [Concomitant]
     Active Substance: TOFACITINIB CITRATE
     Route: 048
  377. XELJANZ [Concomitant]
     Active Substance: TOFACITINIB CITRATE
     Route: 048
  378. XELJANZ [Concomitant]
     Active Substance: TOFACITINIB CITRATE
  379. XELJANZ [Concomitant]
     Active Substance: TOFACITINIB CITRATE
     Route: 048
  380. XELJANZ [Concomitant]
     Active Substance: TOFACITINIB CITRATE
  381. XELJANZ [Concomitant]
     Active Substance: TOFACITINIB CITRATE
  382. XELJANZ [Concomitant]
     Active Substance: TOFACITINIB CITRATE
  383. XELJANZ [Concomitant]
     Active Substance: TOFACITINIB CITRATE
  384. XELJANZ [Concomitant]
     Active Substance: TOFACITINIB CITRATE
  385. XELJANZ [Concomitant]
     Active Substance: TOFACITINIB CITRATE

REACTIONS (19)
  - Bursitis [Unknown]
  - Fall [Unknown]
  - Finger deformity [Unknown]
  - Folliculitis [Unknown]
  - Gastrooesophageal reflux disease [Unknown]
  - Hepatitis [Unknown]
  - Hypoaesthesia [Unknown]
  - Incorrect product administration duration [Unknown]
  - Inflammation [Unknown]
  - Injury [Unknown]
  - Liver function test increased [Unknown]
  - Mobility decreased [Unknown]
  - Muscular weakness [Unknown]
  - Neck pain [Unknown]
  - Pain in extremity [Unknown]
  - Pneumonia [Unknown]
  - Adverse event [Unknown]
  - Off label use [Unknown]
  - Hospitalisation [Unknown]
